FAERS Safety Report 8129465-9 (Version None)
Quarter: 2012Q1

REPORT INFORMATION
  Report Type: 
  Country: None (occurrence: None)
  Receive Date: 20120103
  Receipt Date: 20111006
  Transmission Date: 20120608
  Serious: Yes (Other)
  Sender: FDA-Public Use
  Company Number: AE-2011-002113

PATIENT
  Sex: Male

DRUGS (4)
  1. PEGASYS [Concomitant]
  2. INCIVEK [Suspect]
     Dosage: (2 TABS), ORAL
     Route: 048
     Dates: start: 20110730
  3. PROCRIT [Suspect]
     Dosage: (1 IN 1 WK), SUBCUTANEOUS
     Route: 058
  4. RIBAVIRIN [Concomitant]

REACTIONS (5)
  - ANAEMIA [None]
  - PAIN IN EXTREMITY [None]
  - FATIGUE [None]
  - BLISTER [None]
  - RASH [None]
